FAERS Safety Report 10464738 (Version 1)
Quarter: 2014Q3

REPORT INFORMATION
  Report Type: Spontaneous
  Country: US (occurrence: US)
  Receive Date: 20140919
  Receipt Date: 20140919
  Transmission Date: 20150326
  Serious: Yes (Hospitalization)
  Sender: FDA-Public Use
  Company Number: US-ABBVIE-14P-163-1284698-00

PATIENT
  Age: 31 Year
  Sex: Male

DRUGS (4)
  1. DIVALPROEX SODIUM. [Suspect]
     Active Substance: DIVALPROEX SODIUM
     Indication: SCHIZOAFFECTIVE DISORDER
  2. OLANZAPINE. [Suspect]
     Active Substance: OLANZAPINE
     Indication: SCHIZOAFFECTIVE DISORDER
  3. BENZTROPINE MESYLATE. [Suspect]
     Active Substance: BENZTROPINE MESYLATE
     Indication: SCHIZOAFFECTIVE DISORDER
  4. ZIPRASIDONE [Suspect]
     Active Substance: ZIPRASIDONE
     Indication: SCHIZOAFFECTIVE DISORDER
     Dates: start: 2004

REACTIONS (4)
  - Psychiatric decompensation [Recovered/Resolved]
  - Painful erection [Recovered/Resolved]
  - Inappropriate schedule of drug administration [Recovered/Resolved]
  - Priapism [Recovered/Resolved]
